FAERS Safety Report 16737464 (Version 2)
Quarter: 2019Q3

REPORT INFORMATION
  Report Type: Spontaneous
  Country: US (occurrence: US)
  Receive Date: 20190823
  Receipt Date: 20190826
  Transmission Date: 20191005
  Serious: Yes (Other)
  Sender: FDA-Public Use
  Company Number: US-PFIZER INC-2019361264

PATIENT
  Age: 48 Year
  Sex: Female

DRUGS (4)
  1. CORTISONE [Suspect]
     Active Substance: CORTISONE
     Indication: NECK PAIN
     Dosage: UNK
     Dates: start: 2012
  2. MARCAINE [Suspect]
     Active Substance: BUPIVACAINE HYDROCHLORIDE
     Indication: NECK PAIN
     Dosage: UNK
     Dates: start: 2012
  3. MARCAINE [Suspect]
     Active Substance: BUPIVACAINE HYDROCHLORIDE
     Indication: ARTHRALGIA
  4. CORTISONE [Suspect]
     Active Substance: CORTISONE
     Indication: ARTHRALGIA

REACTIONS (6)
  - Off label use [Unknown]
  - Drug hypersensitivity [Recovered/Resolved]
  - Heart rate increased [Recovered/Resolved]
  - Product use in unapproved indication [Unknown]
  - Cardiac arrest [Recovered/Resolved]
  - Discomfort [Recovered/Resolved]

NARRATIVE: CASE EVENT DATE: 2012
